FAERS Safety Report 8831086 (Version 2)
Quarter: 2012Q4

REPORT INFORMATION
  Report Type: Report from Study
  Country: CA (occurrence: CA)
  Receive Date: 20121008
  Receipt Date: 20121102
  Transmission Date: 20130627
  Serious: Yes (Hospitalization)
  Sender: FDA-Public Use
  Company Number: CA-SANOFI-AVENTIS-2012SA070837

PATIENT
  Age: 76 Year
  Sex: Male
  Weight: 45.8 kg

DRUGS (10)
  1. DOCETAXEL [Suspect]
     Indication: PROSTATE CANCER
     Dosage: every 21 days
     Route: 041
     Dates: start: 20120622, end: 20120622
  2. DOCETAXEL [Suspect]
     Indication: PROSTATE CANCER
     Dosage: every 21 days
     Route: 041
     Dates: start: 20120824, end: 20120824
  3. INVESTIGATIONAL DRUG [Suspect]
     Indication: PROSTATE CANCER
     Dosage: every 21 days
     Route: 042
     Dates: start: 20120612
  4. INVESTIGATIONAL DRUG [Suspect]
     Indication: PROSTATE CANCER
     Dosage: every 21 days
     Route: 042
     Dates: end: 20120824
  5. PREDNISONE [Suspect]
     Route: 048
     Dates: start: 20120622
  6. LUPRON [Concomitant]
     Indication: PROSTATE CANCER
     Dosage: every 3 months
     Route: 030
     Dates: start: 20090630
  7. DEXAMETHASONE [Concomitant]
     Route: 048
     Dates: start: 20120621, end: 20120825
  8. LOPERAMIDE [Concomitant]
     Indication: DIARRHEA
     Route: 048
     Dates: start: 20120718
  9. LOPERAMIDE [Concomitant]
     Indication: DIARRHEA
     Route: 048
     Dates: start: 20120718
  10. ALL OTHER THERAPEUTIC PRODUCTS [Concomitant]
     Indication: MUCOSITIS
     Route: 048
     Dates: start: 20120810

REACTIONS (4)
  - Hyponatraemia [Not Recovered/Not Resolved]
  - Neutropenia [Not Recovered/Not Resolved]
  - Anaemia [Not Recovered/Not Resolved]
  - Fatigue [Not Recovered/Not Resolved]
